FAERS Safety Report 7624260-9 (Version None)
Quarter: 2011Q3

REPORT INFORMATION
  Report Type: 
  Country: None (occurrence: None)
  Receive Date: 20110720
  Receipt Date: 20110705
  Transmission Date: 20111222
  Serious: Yes (Death, Hospitalization, Other)
  Sender: FDA-Public Use
  Company Number: US-BAYER-200943160NA

PATIENT
  Age: 74 Year
  Sex: Male
  Weight: 96 kg

DRUGS (14)
  1. NEORAL [Concomitant]
     Dosage: 75 MG, BID
  2. PROBENECID [Concomitant]
     Dosage: 500 MG, QD
  3. ZOCOR [Concomitant]
  4. LOTENSIN [Concomitant]
  5. CELLCEPT [Concomitant]
     Dosage: 500 MG, BID
  6. ZANTAC [Concomitant]
  7. LOTREL [Concomitant]
     Dosage: 5/20MG
  8. ACETYLSALICYLIC ACID SRT [Concomitant]
  9. ACTONEL [Concomitant]
  10. DOXAZOSIN MESYLATE [Concomitant]
  11. ALLOPURINOL [Concomitant]
  12. PREDNISONE [Concomitant]
  13. NORVASC [Concomitant]
  14. TRASYLOL [Suspect]
     Indication: AORTIC VALVE REPLACEMENT
     Route: 042
     Dates: start: 20051220

REACTIONS (9)
  - RENAL INJURY [None]
  - DEPRESSION [None]
  - RENAL FAILURE ACUTE [None]
  - PAIN [None]
  - RENAL FAILURE [None]
  - GASTRIC DISORDER [None]
  - INJURY [None]
  - DEATH [None]
  - UNEVALUABLE EVENT [None]
